FAERS Safety Report 5065003-5 (Version None)
Quarter: 2006Q3

REPORT INFORMATION
  Report Type: 
  Country: None (occurrence: None)
  Receive Date: 20060728
  Receipt Date: 20030107
  Transmission Date: 20061208
  Serious: Yes (Death, Life-Threatening, Hospitalization, Disabling)
  Sender: FDA-Public Use
  Company Number: DE-ABBOTT-03P-062-0207676-02

PATIENT
  Sex: Female
  Weight: 80.1 kg

DRUGS (4)
  1. HUMIRA [Suspect]
     Indication: RHEUMATOID ARTHRITIS
     Route: 058
     Dates: start: 20000919, end: 20021105
  2. CELECOXIB [Concomitant]
     Indication: RHEUMATOID ARTHRITIS
     Route: 048
     Dates: start: 20020819, end: 20030101
  3. EUGYNON [Concomitant]
     Indication: ORAL CONTRACEPTION
     Route: 048
     Dates: start: 20011011
  4. OMEPRAZOLE MAGNESIUM [Concomitant]
     Indication: PROPHYLAXIS AGAINST GASTROINTESTINAL ULCER
     Route: 048
     Dates: start: 20001118, end: 20030101

REACTIONS (2)
  - BRAIN NEOPLASM [None]
  - GLIOBLASTOMA [None]
